FAERS Safety Report 11762483 (Version 1)
Quarter: 2015Q4

REPORT INFORMATION
  Report Type: Spontaneous
  Country: CO (occurrence: CO)
  Receive Date: 20151120
  Receipt Date: 20151120
  Transmission Date: 20160304
  Serious: Yes (Other)
  Sender: FDA-Public Use
  Company Number: CO-B.I. PHARMACEUTICALS,INC./RIDGEFIELD-2015-BI-65001CL

PATIENT
  Sex: Female
  Weight: 59 kg

DRUGS (11)
  1. OMEPRAZOLE. [Concomitant]
     Active Substance: OMEPRAZOLE
     Dosage: 80 MG
     Route: 048
     Dates: start: 20151029
  2. AMLODIPINE [Concomitant]
     Active Substance: AMLODIPINE BESYLATE
     Dosage: 80 MG
     Route: 048
     Dates: start: 20151029
  3. CANDESARTAN CILEXETIL. [Concomitant]
     Active Substance: CANDESARTAN CILEXETIL
     Indication: HYPERTENSION
     Dosage: 16 MG
     Route: 048
     Dates: start: 201309
  4. AMLODIPINE [Concomitant]
     Active Substance: AMLODIPINE BESYLATE
     Indication: HYPERTENSION
     Dosage: 5 MG
     Route: 048
     Dates: start: 201309
  5. BI 655075 [Suspect]
     Active Substance: IDARUCIZUMAB
     Indication: HAEMORRHAGE
     Dosage: 5 G
     Route: 042
     Dates: start: 20150917, end: 20150917
  6. OMEPRAZOLE. [Concomitant]
     Active Substance: OMEPRAZOLE
     Indication: GASTRITIS
     Dosage: 20 MG
     Route: 048
     Dates: start: 201309, end: 20151028
  7. GABAPENTIN. [Concomitant]
     Active Substance: GABAPENTIN
     Indication: LUMBAR SPINE FLATTENING
     Dosage: 300 MG
     Route: 048
     Dates: start: 201502
  8. ACETAMINOPHEN/DIHIDROCODONE [Concomitant]
     Indication: LUMBAR SPINE FLATTENING
     Dosage: DOSE PER APPLICATION: 325MG/5MG DAILY DOSE: 975MG/15MG
     Route: 048
     Dates: start: 201502
  9. ACETAMINOPHEN/DIHIDROCODONE [Concomitant]
     Indication: ARTERIAL OCCLUSIVE DISEASE
     Dosage: DOSE PER APPLICATION: 325MG/5MG DAILY DOSE: 1300MG/20MG
     Route: 048
     Dates: start: 20151013
  10. APIXABAN [Concomitant]
     Active Substance: APIXABAN
     Indication: ATRIAL FIBRILLATION
     Dosage: 5 MG
     Route: 048
     Dates: start: 20151030
  11. ENOXAPARIN [Concomitant]
     Active Substance: ENOXAPARIN
     Indication: PRODUCT USED FOR UNKNOWN INDICATION
     Dosage: 80 MG
     Route: 058
     Dates: start: 20151109

REACTIONS (1)
  - Haemorrhage [Unknown]
